FAERS Safety Report 21992998 (Version 1)
Quarter: 2023Q1

REPORT INFORMATION
  Report Type: Spontaneous
  Country: GB (occurrence: GB)
  Receive Date: 20230215
  Receipt Date: 20230215
  Transmission Date: 20230417
  Serious: Yes (Death, Other)
  Sender: FDA-Public Use
  Company Number: GB-MHRA-CER-RQM-4348014635

PATIENT
  Age: 42 Year
  Sex: Female

DRUGS (35)
  1. SIMVASTATIN [Suspect]
     Active Substance: SIMVASTATIN
     Indication: Product used for unknown indication
     Dosage: 20 MILLIGRAM, ONCE A DAY (AT BEDTIME)
     Route: 048
     Dates: start: 20221214, end: 20221221
  2. ACETYLCYSTEINE [Concomitant]
     Active Substance: ACETYLCYSTEINE
     Indication: Product used for unknown indication
     Dosage: 1 GTT DROPS, ONCE A DAY (LEFT EYE)
     Route: 065
     Dates: start: 20221221
  3. CALCIUM CARBONATE\CHOLECALCIFEROL [Concomitant]
     Active Substance: CALCIUM CARBONATE\CHOLECALCIFEROL
     Indication: Product used for unknown indication
     Dosage: 1.5 GRAM, TWO TIMES A DAY
     Route: 048
     Dates: start: 20221213
  4. ALFENTANIL [Concomitant]
     Active Substance: ALFENTANIL
     Indication: Product used for unknown indication
     Dosage: 17 MILLILITER
     Route: 058
     Dates: start: 20221219
  5. AMOXICILLIN [Concomitant]
     Active Substance: AMOXICILLIN
     Indication: Pneumonia
     Dosage: 1 GRAM, 3 TIMES A DAY
     Route: 048
     Dates: start: 20221220
  6. APIXABAN [Concomitant]
     Active Substance: APIXABAN
     Indication: Atrial fibrillation
     Dosage: 5 MILLIGRAM, TWO TIMES A DAY
     Route: 048
     Dates: start: 20221220
  7. Aqueous [Concomitant]
     Indication: Product used for unknown indication
     Dosage: 1 DOSAGE FORM, 3 TIMES A DAY
     Route: 061
     Dates: start: 20221214
  8. ASPIRIN [Concomitant]
     Active Substance: ASPIRIN
     Indication: Product used for unknown indication
     Dosage: 75 MILLIGRAM, ONCE A DAY (MORNING)
     Route: 048
     Dates: start: 20221215
  9. BECLOMETHASONE DIPROPIONATE [Concomitant]
     Active Substance: BECLOMETHASONE DIPROPIONATE
     Indication: Product used for unknown indication
     Dosage: 200 MICROGRAM, TWO TIMES A DAY
     Route: 055
     Dates: start: 20221220
  10. CLONAZEPAM [Concomitant]
     Active Substance: CLONAZEPAM
     Indication: Product used for unknown indication
     Dosage: 500 MICROGRAM, ONCE A DAY (AT BEDTIME)
     Route: 048
     Dates: start: 20221220
  11. DEXAMETHASONE [Concomitant]
     Active Substance: DEXAMETHASONE
     Indication: Product used for unknown indication
     Dosage: 1 GTT DROPS, FOUR TIMES/DAY (LEFT EYE)
     Route: 065
     Dates: start: 20221219
  12. DIAZEPAM [Concomitant]
     Active Substance: DIAZEPAM
     Indication: Product used for unknown indication
     Dosage: 5 MILLIGRAM, ONCE A DAY (AT BEDTIME)
     Route: 048
     Dates: start: 20221219
  13. DOBUTAMINE [Concomitant]
     Active Substance: DOBUTAMINE HYDROCHLORIDE
     Indication: Product used for unknown indication
     Dosage: 25 MILLILITER (CENTRAL)
     Route: 042
     Dates: start: 20221220
  14. ENOXAPARIN [Concomitant]
     Active Substance: ENOXAPARIN
     Indication: Embolism venous
     Dosage: 40 MILLIGRAM, ONCE A DAY (EVERY EVENING AT 6PM)
     Route: 058
     Dates: start: 20221214
  15. FENTANYL [Concomitant]
     Active Substance: FENTANYL
     Indication: Product used for unknown indication
     Dosage: 200 MICROGRAM (4MICROGRAM/ML. 500ML INFUSION.)
     Route: 008
     Dates: start: 20221219
  16. DEXTROSE [Concomitant]
     Active Substance: DEXTROSE
     Indication: Product used for unknown indication
     Dosage: 500 MILLILITER, EVERY HOUR
     Route: 042
     Dates: start: 20221219
  17. IBUPROFEN [Concomitant]
     Active Substance: IBUPROFEN
     Indication: Product used for unknown indication
     Dosage: 400 MILLIGRAM, 3 TIMES A DAY
     Route: 048
     Dates: start: 20221219
  18. Immunoglobulin [Concomitant]
     Indication: Immune thrombocytopenia
     Dosage: 20 GRAM, ONCE A DAY (FOR 3 DAY(S))
     Route: 042
     Dates: start: 20221220
  19. KABIVEN [Concomitant]
     Active Substance: AMINO ACIDS\ANHYDROUS DEXTROSE\CALCIUM CHLORIDE\MAGNESIUM SULFATE HEPTAHYDRATE\POTASSIUM CHLORIDE\SO
     Indication: Product used for unknown indication
     Dosage: 2566 MILLILITER (1 BAG(S))
     Route: 042
     Dates: start: 20221219, end: 20221220
  20. LEVOBUPIVACAINE [Concomitant]
     Active Substance: LEVOBUPIVACAINE
     Indication: Product used for unknown indication
     Dosage: 500 MILLILITER
     Route: 008
     Dates: start: 20221219
  21. METFORMIN [Concomitant]
     Active Substance: METFORMIN HYDROCHLORIDE
     Indication: Product used for unknown indication
     Dosage: 500 MILLIGRAM, TWO TIMES A DAY (AT 8AM AND 6PM)
     Route: 048
     Dates: start: 20221219
  22. MORPHINE SULFATE [Concomitant]
     Active Substance: MORPHINE SULFATE
     Indication: Product used for unknown indication
     Dosage: 50 MILLILITER ((ADDITIVE FOR INFUSION) 1-2MG PRN FOR 5 DOSE(S)10 MG TWICE A DAY ORAL)
     Route: 042
     Dates: start: 20221219
  23. NOREPINEPHRINE [Concomitant]
     Active Substance: NOREPINEPHRINE
     Indication: Product used for unknown indication
     Dosage: 50 MILLILITER (CENTRAL)
     Route: 042
     Dates: start: 20221220
  24. NOVORAPID [Concomitant]
     Active Substance: INSULIN ASPART
     Indication: Product used for unknown indication
     Dosage: 30 INTERNATIONAL UNIT ()REFER TO STRUCTURED NOTES FOR REGIMEN UNSCHEDULED(
     Route: 058
     Dates: start: 20221219
  25. ONDANSETRON [Concomitant]
     Active Substance: ONDANSETRON
     Indication: Product used for unknown indication
     Dosage: 4 MILLIGRAM, 3 TIMES A DAY (ORAL/ INTRAVENOUS/ INTRAMUSCULAR)
     Route: 048
     Dates: start: 20221221
  26. OXYGEN [Concomitant]
     Active Substance: OXYGEN
     Indication: Product used for unknown indication
     Dosage: 2 LITER (2 L/MIN AS REQUIRED INHALED)
     Route: 055
     Dates: start: 20221219
  27. PREDNISOLONE [Concomitant]
     Active Substance: PREDNISOLONE
     Indication: Product used for unknown indication
     Dosage: 15 MILLIGRAM, ONCE A DAY (EVERY MORNING)
     Route: 048
     Dates: start: 20221221, end: 20221222
  28. HUMAN RED BLOOD CELL [Concomitant]
     Active Substance: HUMAN RED BLOOD CELL
     Indication: Product used for unknown indication
     Dosage: ALIQUOT(S) OR UNIT(S) TO PRESCRIBED VOLU UNSCHEDULED. 4 DOSES.
     Route: 042
     Dates: start: 20221219
  29. ISONIAZID\RIFAMPIN [Concomitant]
     Active Substance: ISONIAZID\RIFAMPIN
     Indication: Tuberculosis
     Dosage: 4 DOSAGE FORM, ONCE A DAY (150 MG-100 MG)
     Route: 048
     Dates: start: 20221221
  30. ALBUTEROL [Concomitant]
     Active Substance: ALBUTEROL
     Indication: Product used for unknown indication
     Dosage: 200 MICROGRAM, ONCE A DAY
     Route: 042
     Dates: start: 20221220
  31. SODIUM CHLORIDE [Concomitant]
     Active Substance: SODIUM CHLORIDE
     Indication: Product used for unknown indication
     Dosage: DILUENT FOR PCA
     Route: 065
  32. VALPROATE SODIUM [Concomitant]
     Active Substance: VALPROATE SODIUM
     Indication: Product used for unknown indication
     Dosage: 500 MILLIGRAM, ONCE A DAY
     Route: 048
     Dates: start: 20221220
  33. TIMOLOL [Concomitant]
     Active Substance: TIMOLOL
     Indication: Product used for unknown indication
     Dosage: 1 GTT DROPS, ONCE A DAY (LEFT EYE)
     Route: 065
     Dates: start: 20221220
  34. TRIMOVATE [Concomitant]
     Active Substance: CLOBETASONE BUTYRATE\NYSTATIN\OXYTETRACYCLINE CALCIUM
     Indication: Product used for unknown indication
     Dosage: 1 DOSAGE FORM, TWO TIMES A DAY
     Route: 061
     Dates: start: 20221214
  35. WARFARIN [Concomitant]
     Active Substance: WARFARIN
     Indication: Product used for unknown indication
     Dosage: 1 DOSAGE FORM, ONCE A DAY (AT MIDDAY)
     Route: 048
     Dates: start: 20221220

REACTIONS (2)
  - Death [Fatal]
  - Myalgia [Fatal]
